FAERS Safety Report 9916350 (Version 1)
Quarter: 2014Q1

REPORT INFORMATION
  Report Type: Spontaneous
  Country: US (occurrence: None)
  Receive Date: 20140219
  Receipt Date: 20140219
  Transmission Date: 20141002
  Serious: Yes (Hospitalization)
  Sender: FDA-Public Use
  Company Number: UTC-044606

PATIENT
  Age: 9 Year
  Sex: Male
  Weight: 19.4 kg

DRUGS (1)
  1. TYVASO [Suspect]
     Indication: COR PULMONALE CHRONIC
     Dosage: 18-54 MCG ( 4 IN 1 D) INHALATION
     Route: 055
     Dates: start: 20130529, end: 201401

REACTIONS (3)
  - Pneumonia [None]
  - Syncope [None]
  - Oxygen saturation decreased [None]
